FAERS Safety Report 6813237-9 (Version None)
Quarter: 2010Q3

REPORT INFORMATION
  Report Type: 
  Country: None (occurrence: None)
  Receive Date: 20100701
  Receipt Date: 20100621
  Transmission Date: 20110219
  Serious: Yes (Other)
  Sender: FDA-Public Use
  Company Number: BE-PFIZER INC-2010067899

PATIENT
  Age: 47 Year
  Sex: Female
  Weight: 125 kg

DRUGS (14)
  1. ECALTA [Suspect]
     Indication: CANDIDIASIS
     Dosage: 200 MG, 1X/DAY
     Route: 042
     Dates: start: 20100528, end: 20100528
  2. TRANXENE [Concomitant]
     Dosage: 5 MG, 1X/DAY
     Route: 048
  3. CLEXANE [Concomitant]
     Dosage: 60 MG, 1X/DAY
     Route: 058
  4. CO-DIOVANE [Concomitant]
  5. LITICAN [Concomitant]
     Dosage: UNK
     Route: 042
  6. SANDOSTATIN [Concomitant]
     Dosage: 0.5 MG, 3X/DAY
     Route: 058
  7. ZOLPIDEM [Concomitant]
     Dosage: 10 MG, 1X/DAY
     Route: 048
  8. COMBIVENT [Concomitant]
     Dosage: UNK
     Route: 055
  9. TAZOCIN [Concomitant]
     Dosage: 4 G, 4X/DAY
     Route: 042
  10. DIFLUCAN [Concomitant]
     Dosage: 800 MG, 1X/DAY
     Route: 042
     Dates: start: 20100527
  11. PARACETAMOL [Concomitant]
     Indication: PAIN
     Dosage: 1 G, 4X/DAY
     Route: 042
  12. CETIRIZINE [Concomitant]
     Dosage: UNK
     Route: 048
     Dates: start: 20100526
  13. CHAMPIX [Concomitant]
     Dosage: UNK
  14. PANTOPRAZOL [Concomitant]

REACTIONS (5)
  - DYSPNOEA [None]
  - HYPERSENSITIVITY [None]
  - HYPOTENSION [None]
  - MUSCLE SPASMS [None]
  - RASH [None]
